FAERS Safety Report 15906272 (Version 1)
Quarter: 2019Q1

REPORT INFORMATION
  Report Type: Spontaneous
  Country: US (occurrence: US)
  Receive Date: 20190203
  Receipt Date: 20190203
  Transmission Date: 20190417
  Serious: Yes (Life-Threatening)
  Sender: FDA-Public Use
  Company Number: None

PATIENT
  Age: 67 Year
  Sex: Female
  Weight: 62.1 kg

DRUGS (28)
  1. CELEBREX [Suspect]
     Active Substance: CELECOXIB
  2. VYVANSE/RITALIN (FATIGUE) [Concomitant]
  3. OPIODS [Concomitant]
     Active Substance: UNSPECIFIED INGREDIENT
  4. CORTISONE CREME [Concomitant]
  5. CLOBETASOL OINTMENT [Concomitant]
     Active Substance: CLOBETASOL
  6. MIRALAX [Concomitant]
     Active Substance: POLYETHYLENE GLYCOL 3350
  7. ADVAIR HFA [Concomitant]
     Active Substance: FLUTICASONE PROPIONATE\SALMETEROL XINAFOATE
  8. CELEBREX [Concomitant]
     Active Substance: CELECOXIB
  9. MUPERCIN OINTMENT [Concomitant]
  10. GENERIC MEDICATION [Concomitant]
     Active Substance: UNSPECIFIED INGREDIENT
  11. LAMICTAL [Concomitant]
     Active Substance: LAMOTRIGINE
  12. VITAMIN D [Concomitant]
     Active Substance: CHOLECALCIFEROL
  13. NEXIUM [Concomitant]
     Active Substance: ESOMEPRAZOLE MAGNESIUM
  14. CYMBALTA [Concomitant]
     Active Substance: DULOXETINE HYDROCHLORIDE
  15. FERROUS GLUTAMATE [Concomitant]
     Active Substance: FERROUS GLUTAMATE
  16. CLENPIQ [Suspect]
     Active Substance: ANHYDROUS CITRIC ACID\MAGNESIUM OXIDE\SODIUM PICOSULFATE
     Indication: BOWEL PREPARATION
     Dosage: ?          QUANTITY:4 OUNCE(S);?
     Route: 048
     Dates: start: 20181225, end: 20181225
  17. PREMARIN [Concomitant]
     Active Substance: ESTROGENS, CONJUGATED
  18. LOSARTIN [Concomitant]
     Active Substance: LOSARTAN
  19. ABILIFY [Concomitant]
     Active Substance: ARIPIPRAZOLE
  20. LORAZEPAM. [Concomitant]
     Active Substance: LORAZEPAM
  21. LINZESS [Concomitant]
     Active Substance: LINACLOTIDE
  22. VOLTARIN GEL [Concomitant]
  23. FLONASE [Concomitant]
     Active Substance: FLUTICASONE PROPIONATE
  24. TYLENOL, ARTHRITIS STRENGTH [Concomitant]
  25. PREDNISONE. [Concomitant]
     Active Substance: PREDNISONE
  26. COLACE [Concomitant]
     Active Substance: DOCUSATE SODIUM
  27. CIMZIA [Concomitant]
     Active Substance: CERTOLIZUMAB PEGOL
  28. ZYRTEC [Concomitant]
     Active Substance: CETIRIZINE HYDROCHLORIDE

REACTIONS (2)
  - Protrusion tongue [None]
  - Swollen tongue [None]

NARRATIVE: CASE EVENT DATE: 20181225
